FAERS Safety Report 8641538 (Version 5)
Quarter: 2014Q3

REPORT INFORMATION
  Report Type: Spontaneous
  Country: US (occurrence: US)
  Receive Date: 20120628
  Receipt Date: 20140703
  Transmission Date: 20150326
  Serious: Yes (Hospitalization)
  Sender: FDA-Public Use
  Company Number: US-GLAXOSMITHKLINE-A0969670A

PATIENT
  Age: 40 Year
  Sex: Female
  Weight: 128.2 kg

DRUGS (7)
  1. NEXIUM [Concomitant]
     Active Substance: ESOMEPRAZOLE MAGNESIUM
  2. SOMA [Concomitant]
     Active Substance: CARISOPRODOL
  3. ADVAIR HFA [Suspect]
     Active Substance: FLUTICASONE PROPIONATE\SALMETEROL XINAFOATE
     Indication: PRODUCT USED FOR UNKNOWN INDICATION
     Route: 065
     Dates: start: 20110415
  4. ARIXTRA [Suspect]
     Active Substance: FONDAPARINUX SODIUM
     Indication: EMBOLISM VENOUS
     Dosage: 10MG UNKNOWN
     Route: 065
     Dates: start: 20110405
  5. IMITREX [Suspect]
     Active Substance: SUMATRIPTAN\SUMATRIPTAN SUCCINATE
     Indication: PRODUCT USED FOR UNKNOWN INDICATION
     Dosage: 20MG UNKNOWN
     Route: 065
     Dates: start: 20110415
  6. VENTOLIN HFA [Suspect]
     Active Substance: ALBUTEROL SULFATE
     Indication: PRODUCT USED FOR UNKNOWN INDICATION
     Route: 065
     Dates: start: 20110415
  7. SYMBICORT [Concomitant]
     Active Substance: BUDESONIDE\FORMOTEROL FUMARATE DIHYDRATE

REACTIONS (8)
  - Ill-defined disorder [Unknown]
  - Gastric haemorrhage [Unknown]
  - Investigation [Unknown]
  - Vomiting [Unknown]
  - Amnesia [Unknown]
  - Occult blood positive [Unknown]
  - Exposure during pregnancy [Unknown]
  - Oxygen supplementation [Not Recovered/Not Resolved]
